FAERS Safety Report 8547781-3 (Version None)
Quarter: 2012Q3

REPORT INFORMATION
  Report Type: 
  Country: None (occurrence: None)
  Receive Date: 20120727
  Receipt Date: 20120106
  Transmission Date: 20120928
  Serious: Yes (Other)
  Sender: FDA-Public Use
  Company Number: US-ASTRAZENECA-2012SE01516

PATIENT
  Age: 97 Year
  Sex: Male

DRUGS (1)
  1. SEROQUEL [Suspect]
     Indication: AGGRESSION
     Route: 048

REACTIONS (2)
  - PHARYNGITIS [None]
  - PNEUMONIA [None]
